FAERS Safety Report 8099176-7 (Version None)
Quarter: 2012Q1

REPORT INFORMATION
  Report Type: 
  Country: None (occurrence: None)
  Receive Date: 20120129
  Receipt Date: 20111004
  Transmission Date: 20120608
  Serious: No
  Sender: FDA-Public Use
  Company Number: US-ABBOTT-11P-163-0860890-00

PATIENT
  Age: 23 Year
  Sex: Male

DRUGS (2)
  1. MULTI-VITAMIN [Concomitant]
     Indication: PRODUCT USED FOR UNKNOWN INDICATION
  2. HUMIRA [Suspect]
     Indication: CROHN'S DISEASE
     Dates: start: 20110715

REACTIONS (3)
  - MEMORY IMPAIRMENT [None]
  - INSOMNIA [None]
  - ANXIETY [None]
